FAERS Safety Report 4350251-X (Version None)
Quarter: 2004Q2

REPORT INFORMATION
  Report Type: 
  Country: None (occurrence: None)
  Receive Date: 20040428
  Receipt Date: 20040409
  Transmission Date: 20050107
  Serious: Yes (Congenital Anomaly)
  Sender: FDA-Public Use
  Company Number: 2004PL000026

PATIENT
  Sex: Male

DRUGS (4)
  1. AZATHIOPRINE [Suspect]
     Indication: SKIN DISORDER
     Dosage: ORAL
     Route: 048
  2. HYDROCORTISONE [Concomitant]
  3. ANTIBIOTICS [Concomitant]
  4. ANALGESIC LIQ [Concomitant]

REACTIONS (3)
  - CONGENITAL HYDRONEPHROSIS [None]
  - CONGENITAL MEGAURETER [None]
  - TRANSMISSION OF DRUG VIA SEMEN [None]
